FAERS Safety Report 9826450 (Version 1)
Quarter: 2014Q1

REPORT INFORMATION
  Report Type: Spontaneous
  Country: US (occurrence: US)
  Receive Date: 20140117
  Receipt Date: 20140117
  Transmission Date: 20141002
  Serious: No
  Sender: FDA-Public Use
  Company Number: US-BIOGENIDEC-2014BI003092

PATIENT
  Age: 44 Year
  Sex: Female

DRUGS (7)
  1. TECFIDERA [Suspect]
     Indication: MULTIPLE SCLEROSIS
     Route: 048
     Dates: start: 20131015
  2. FROVA [Concomitant]
  3. TIZANIDINE HCL [Concomitant]
  4. TOPAMAX [Concomitant]
  5. TYLENOL [Concomitant]
     Indication: ARTHRITIS
  6. TYLENOL [Concomitant]
     Indication: PAIN
  7. ZANAFLEX [Concomitant]

REACTIONS (1)
  - Fall [Recovered/Resolved]
